FAERS Safety Report 8896103 (Version 1)
Quarter: 2012Q4

REPORT INFORMATION
  Report Type: 
  Country: US (occurrence: US)
  Receive Date: 20121108
  Receipt Date: 20121108
  Transmission Date: 20130627
  Serious: Yes (Other)
  Sender: FDA-Public Use
  Company Number: PHEH2012US019989

PATIENT
  Age: 56 Year
  Sex: Female
  Weight: 66 kg

DRUGS (12)
  1. AFINITOR [Suspect]
     Indication: BREAST CANCER STAGE IV
     Dosage: 10 mg, QD
     Route: 048
     Dates: start: 20120108, end: 20121010
  2. ZOLPIDEM [Concomitant]
     Indication: SLEEP DISORDER
     Dosage: 10 mg, QD
     Route: 048
  3. OXYCODONE [Concomitant]
     Indication: PAIN
     Dosage: 5 mg, Q4H
     Route: 048
  4. GABAPENTIN [Concomitant]
     Indication: NEUROPATHY PERIPHERAL
     Dosage: 300 mg, TID
     Route: 048
  5. OMEPRAZOLE [Concomitant]
     Indication: DUODENOGASTRIC REFLUX
     Dosage: 20 mg, BID
     Route: 048
  6. BACTRIM [Concomitant]
     Indication: CELLULITIS
     Route: 048
  7. AROMASIN [Concomitant]
     Dosage: 25 mg, QD
     Route: 048
  8. LORAZEPAM [Concomitant]
     Indication: ANXIETY
     Dosage: 1 mg, Q6H
     Route: 048
  9. LEXAPRO [Concomitant]
     Indication: DEPRESSION
     Dosage: 5 mg, QD
     Route: 048
  10. SEROQUEL [Concomitant]
     Indication: DEPRESSION
     Dosage: 400 mg, QD
     Route: 048
  11. IBUPROFEN [Concomitant]
     Indication: PAIN
     Dosage: 400 mg, Q8H
     Route: 048
  12. VENLAFAXIN [Concomitant]
     Dosage: 150 mg, QD
     Route: 048

REACTIONS (1)
  - Contusion [Recovered/Resolved]
